FAERS Safety Report 4472660-0 (Version None)
Quarter: 2004Q4

REPORT INFORMATION
  Report Type: 
  Country: None (occurrence: None)
  Receive Date: 20041008
  Receipt Date: 20040916
  Transmission Date: 20050328
  Serious: Yes (Life-Threatening, Hospitalization)
  Sender: FDA-Public Use
  Company Number: FR_040904798

PATIENT
  Age: 56 Year
  Sex: Female
  Weight: 51 kg

DRUGS (1)
  1. PROZAC [Suspect]
     Dosage: 40 MG/1 DAY
     Dates: start: 20040709, end: 20040726

REACTIONS (9)
  - ABNORMAL BEHAVIOUR [None]
  - AGITATION [None]
  - COMA [None]
  - CONVULSION [None]
  - HEADACHE [None]
  - INAPPROPRIATE ANTIDIURETIC HORMONE SECRETION [None]
  - INFUSION RELATED REACTION [None]
  - SUFFOCATION FEELING [None]
  - VOMITING [None]
